FAERS Safety Report 4289150-0 (Version None)
Quarter: 2004Q1

REPORT INFORMATION
  Report Type: 
  Country: None (occurrence: None)
  Receive Date: 20040206
  Receipt Date: 20040128
  Transmission Date: 20041129
  Serious: Yes (Hospitalization)
  Sender: FDA-Public Use
  Company Number: TPA2003A01702

PATIENT
  Age: 54 Year
  Sex: Male

DRUGS (5)
  1. ACTOS [Suspect]
     Indication: DIABETES MELLITUS INSULIN-DEPENDENT
     Dosage: SEE IMAGE
     Route: 048
     Dates: start: 20030301
  2. LIPITOR [Concomitant]
  3. LANTUS [Concomitant]
  4. HUMALOG [Concomitant]
  5. IMDUR [Concomitant]

REACTIONS (5)
  - EYE DISORDER [None]
  - MACULAR OEDEMA [None]
  - PITTING OEDEMA [None]
  - VISUAL DISTURBANCE [None]
  - WEIGHT INCREASED [None]
